FAERS Safety Report 15494272 (Version 5)
Quarter: 2019Q1

REPORT INFORMATION
  Report Type: Spontaneous
  Country: US (occurrence: US)
  Receive Date: 20181012
  Receipt Date: 20190130
  Transmission Date: 20190417
  Serious: No
  Sender: FDA-Public Use
  Company Number: US-PFIZER INC-2018413737

PATIENT
  Age: 78 Year
  Sex: Female
  Weight: 77 kg

DRUGS (1)
  1. GABAPENTIN. [Suspect]
     Active Substance: GABAPENTIN
     Dosage: 600 MG, DAILY (100 MG CAPSULE, 1 IN THE MORNING, 2 AT NOON, 3 AT NIGHT)
     Route: 048

REACTIONS (3)
  - Peripheral swelling [Unknown]
  - Dizziness [Unknown]
  - Drug ineffective [Unknown]
